FAERS Safety Report 16418639 (Version 1)
Quarter: 2019Q2

REPORT INFORMATION
  Report Type: Report from Study
  Country: None (occurrence: US)
  Receive Date: 20190612
  Receipt Date: 20190612
  Transmission Date: 20190711
  Serious: Yes (Other)
  Sender: FDA-Public Use
  Company Number: US-ABBVIE-19K-163-2810437-00

PATIENT
  Age: 48 Year
  Sex: Male

DRUGS (1)
  1. VENCLEXTA [Suspect]
     Active Substance: VENETOCLAX
     Indication: PRODUCT USED FOR UNKNOWN INDICATION
     Route: 048

REACTIONS (6)
  - Fatigue [Not Recovered/Not Resolved]
  - Spinal cord compression [Recovered/Resolved]
  - Spinal cord compression [Not Recovered/Not Resolved]
  - Hepatic enzyme increased [Unknown]
  - Nausea [Not Recovered/Not Resolved]
  - Post procedural discomfort [Unknown]

NARRATIVE: CASE EVENT DATE: 201905
